FAERS Safety Report 23292195 (Version 2)
Quarter: 2025Q1

REPORT INFORMATION
  Report Type: Spontaneous
  Country: JP (occurrence: JP)
  Receive Date: 20231213
  Receipt Date: 20250317
  Transmission Date: 20250409
  Serious: Yes (Hospitalization, Other)
  Sender: BAYER HEALTHCARE PHARMACEUTICALS INC.
  Company Number: JP-BAYER-2023A173353

PATIENT
  Age: 47 Year
  Sex: Female
  Weight: 56 kg

DRUGS (1)
  1. MIRENA [Suspect]
     Active Substance: LEVONORGESTREL
     Indication: Adenomyosis
     Dosage: 20?G/DAY
     Route: 015

REACTIONS (8)
  - Endometrial cancer stage IV [Not Recovered/Not Resolved]
  - Device difficult to use [None]
  - Medical device monitoring error [Not Recovered/Not Resolved]
  - Contraindicated device used [Not Recovered/Not Resolved]
  - Device issue [None]
  - Unexpected vaginal bleeding on hormonal IUD [None]
  - Off label use of device [None]
  - Device use issue [None]
